FAERS Safety Report 6268733-2 (Version None)
Quarter: 2009Q3

REPORT INFORMATION
  Report Type: 
  Country: None (occurrence: None)
  Receive Date: 20090715
  Receipt Date: 20090708
  Transmission Date: 20100115
  Serious: Yes (Other)
  Sender: FDA-Public Use
  Company Number: US-BAYER-200926028NA

PATIENT
  Age: 60 Year
  Sex: Male

DRUGS (9)
  1. NEXAVAR [Suspect]
     Indication: HEPATIC NEOPLASM MALIGNANT
     Dosage: TOTAL DAILY DOSE: 800 MG  UNIT DOSE: 200 MG
     Route: 048
     Dates: start: 20090608, end: 20090707
  2. DOXAZOSIN MESYLATE [Concomitant]
  3. INSULIN [Concomitant]
  4. KIOMAX [Concomitant]
  5. LIPITOR [Concomitant]
  6. LISINOPRIL [Concomitant]
  7. METFORMIN HCL [Concomitant]
  8. PRILOSEC [Concomitant]
  9. COMPAZINE [Concomitant]

REACTIONS (1)
  - RENAL FAILURE [None]
